FAERS Safety Report 21186317 (Version 2)
Quarter: 2023Q2

REPORT INFORMATION
  Report Type: Spontaneous
  Country: US (occurrence: US)
  Receive Date: 20220808
  Receipt Date: 20230504
  Transmission Date: 20230721
  Serious: No
  Sender: FDA-Public Use
  Company Number: US-SA-SAC20220802001513

PATIENT
  Age: 32 Year
  Sex: Female

DRUGS (1)
  1. DUPIXENT [Suspect]
     Active Substance: DUPILUMAB
     Indication: Dermatitis atopic
     Dosage: 300 MG, QOW
     Route: 058
     Dates: start: 20210820

REACTIONS (6)
  - Visual impairment [Recovering/Resolving]
  - Vision blurred [Unknown]
  - Injection site reaction [Recovering/Resolving]
  - Eye irritation [Recovering/Resolving]
  - Dry eye [Unknown]
  - Conjunctivitis [Unknown]
